FAERS Safety Report 6625530-3 (Version None)
Quarter: 2010Q1

REPORT INFORMATION
  Report Type: 
  Country: None (occurrence: None)
  Receive Date: 20100223
  Receipt Date: 20100107
  Transmission Date: 20100710
  Serious: No
  Sender: FDA-Public Use
  Company Number: 8054862

PATIENT
  Sex: Female

DRUGS (2)
  1. CERTOLIZUMAB PEGOL [Suspect]
     Indication: DRUG USE FOR UNKNOWN INDICATION
     Dosage: (400 MG MONTHLY SUBCUTANEOUS)
     Route: 058
     Dates: start: 20090115
  2. CERTOLIZUMAB PEGOL [Suspect]

REACTIONS (1)
  - FATIGUE [None]
